FAERS Safety Report 5952192-0 (Version None)
Quarter: 2008Q4

REPORT INFORMATION
  Report Type: 
  Country: None (occurrence: None)
  Receive Date: 20081113
  Receipt Date: 20080908
  Transmission Date: 20090506
  Serious: No
  Sender: FDA-Public Use
  Company Number: A0746330A

PATIENT
  Age: 54 Year
  Sex: Male

DRUGS (5)
  1. COREG [Suspect]
     Indication: HYPERTENSION
     Dosage: 2TAB TWICE PER DAY
     Route: 048
  2. LEVITRA [Concomitant]
  3. PROCARDIA [Concomitant]
  4. CLONIDINE [Concomitant]
  5. BENAZEPRIL HYDROCHLORIDE [Concomitant]

REACTIONS (1)
  - ERECTILE DYSFUNCTION [None]
